FAERS Safety Report 6971780-6 (Version None)
Quarter: 2010Q3

REPORT INFORMATION
  Report Type: 
  Country: None (occurrence: None)
  Receive Date: 20100903
  Receipt Date: 20100831
  Transmission Date: 20110219
  Serious: Yes (Death)
  Sender: FDA-Public Use
  Company Number: 2010SP040857

PATIENT
  Age: 39 Year
  Sex: Male

DRUGS (6)
  1. MIRTAZAPINE [Suspect]
     Indication: DEPRESSION
     Dosage: 15 MG; HS; PO, 7.5 MG; QD; PO
     Route: 048
     Dates: start: 20100720, end: 20100722
  2. MIRTAZAPINE [Suspect]
     Indication: INSOMNIA
     Dosage: 15 MG; HS; PO, 7.5 MG; QD; PO
     Route: 048
     Dates: start: 20100720, end: 20100722
  3. MIRTAZAPINE [Suspect]
     Indication: DEPRESSION
     Dosage: 15 MG; HS; PO, 7.5 MG; QD; PO
     Route: 048
     Dates: start: 20100723, end: 20100725
  4. MIRTAZAPINE [Suspect]
     Indication: INSOMNIA
     Dosage: 15 MG; HS; PO, 7.5 MG; QD; PO
     Route: 048
     Dates: start: 20100723, end: 20100725
  5. ZOLPIDEM TARTRATE [Concomitant]
  6. BROMAZEPAM [Concomitant]

REACTIONS (11)
  - ABNORMAL BEHAVIOUR [None]
  - AGGRESSION [None]
  - ANXIETY [None]
  - CRYING [None]
  - DECREASED INTEREST [None]
  - DYSTONIA [None]
  - FEELING GUILTY [None]
  - NERVOUSNESS [None]
  - SOCIAL PHOBIA [None]
  - SUICIDAL IDEATION [None]
  - THINKING ABNORMAL [None]
